FAERS Safety Report 6611841-4 (Version None)
Quarter: 2010Q1

REPORT INFORMATION
  Report Type: 
  Country: None (occurrence: None)
  Receive Date: 20100303
  Receipt Date: 20100227
  Transmission Date: 20100710
  Serious: Yes (Hospitalization, Other)
  Sender: FDA-Public Use
  Company Number: CN-ROCHE-687704

PATIENT
  Age: 74 Year
  Sex: Male
  Weight: 50 kg

DRUGS (3)
  1. XELODA [Suspect]
     Route: 048
     Dates: start: 20090901, end: 20100101
  2. CHEMOTHERAPY DRUG NOS [Concomitant]
     Route: 041
     Dates: start: 20090901, end: 20090901
  3. 1 UNSPECIFIED DRUG [Concomitant]
     Indication: PAIN
     Dosage: REPORTED AS PAIN-KILLER
     Route: 048

REACTIONS (4)
  - ASTHENIA [None]
  - METASTASES TO STOMACH [None]
  - PALMAR-PLANTAR ERYTHRODYSAESTHESIA SYNDROME [None]
  - POOR QUALITY SLEEP [None]
